FAERS Safety Report 11209241 (Version 4)
Quarter: 2015Q4

REPORT INFORMATION
  Report Type: Report from Study
  Country: US (occurrence: US)
  Receive Date: 20150622
  Receipt Date: 20151203
  Transmission Date: 20160304
  Serious: Yes (Hospitalization, Other)
  Sender: FDA-Public Use
  Company Number: PHEH2015US006322

PATIENT
  Age: 68 Year
  Sex: Female
  Weight: 139 kg

DRUGS (8)
  1. EXCEDRIN MIGRAINE [Concomitant]
     Active Substance: ACETAMINOPHEN\ASPIRIN\CAFFEINE
     Indication: PRODUCT USED FOR UNKNOWN INDICATION
     Dosage: UNK, QD (250-250-65 MG)
     Route: 065
  2. BACLOFEN. [Concomitant]
     Active Substance: BACLOFEN
     Indication: PRODUCT USED FOR UNKNOWN INDICATION
     Dosage: 10 MG, FOUR TIMES DAILY
     Route: 048
  3. GILENYA [Suspect]
     Active Substance: FINGOLIMOD HYDROCHLORIDE
     Indication: MULTIPLE SCLEROSIS
     Dosage: 0.5 MG, QD
     Route: 048
     Dates: start: 20150227
  4. ALEVE [Concomitant]
     Active Substance: NAPROXEN SODIUM
     Indication: PRODUCT USED FOR UNKNOWN INDICATION
     Dosage: 220 MG, PRN
     Route: 065
  5. ASPIRIN. [Concomitant]
     Active Substance: ASPIRIN
     Indication: PRODUCT USED FOR UNKNOWN INDICATION
     Dosage: 81 MG, QD
     Route: 065
  6. GLUCOSAMINE CHONDROITIN            /01430901/ [Concomitant]
     Indication: PRODUCT USED FOR UNKNOWN INDICATION
     Dosage: UNK, QD 500 COMPLEX CAPS
     Route: 065
  7. LEVOTHYROXINE SODIUM. [Concomitant]
     Active Substance: LEVOTHYROXINE SODIUM
     Indication: PRODUCT USED FOR UNKNOWN INDICATION
     Dosage: 112 UG, QD
     Route: 065
  8. LISINOPRIL AND HYDROCHLOROTHIAZIDE [Concomitant]
     Active Substance: HYDROCHLOROTHIAZIDE\LISINOPRIL
     Indication: PRODUCT USED FOR UNKNOWN INDICATION
     Dosage: 1 DF, QD
     Route: 065

REACTIONS (39)
  - Headache [Not Recovered/Not Resolved]
  - Feeling jittery [Unknown]
  - Upper respiratory tract infection [Unknown]
  - Balance disorder [Unknown]
  - Restless legs syndrome [Unknown]
  - Dysphagia [Unknown]
  - Vitreous floaters [Unknown]
  - Neck pain [Unknown]
  - Carbon dioxide decreased [Unknown]
  - Diarrhoea [Not Recovered/Not Resolved]
  - Lymphocyte count decreased [Unknown]
  - Muscular weakness [Unknown]
  - Cervical spinal stenosis [Unknown]
  - Motor dysfunction [Unknown]
  - Musculoskeletal stiffness [Unknown]
  - Neutrophil count increased [Unknown]
  - Hypokinesia [Unknown]
  - Cough [Unknown]
  - Amnesia [Unknown]
  - Sensory disturbance [Unknown]
  - Reflexes abnormal [Unknown]
  - Blood urea increased [Unknown]
  - Spinal osteoarthritis [Unknown]
  - Asthenia [Not Recovered/Not Resolved]
  - Productive cough [Unknown]
  - Muscle atrophy [Unknown]
  - Nervousness [Unknown]
  - Visual field defect [Unknown]
  - Blood creatinine increased [Unknown]
  - Drug ineffective [Unknown]
  - Aspartate aminotransferase decreased [Unknown]
  - Blood glucose increased [Unknown]
  - Aphasia [Unknown]
  - Bronchitis [Unknown]
  - Respiratory tract congestion [Unknown]
  - Dyspnoea [Not Recovered/Not Resolved]
  - Blood potassium increased [Unknown]
  - Cataract [Unknown]
  - Eosinophil count decreased [Unknown]

NARRATIVE: CASE EVENT DATE: 20150327
